FAERS Safety Report 8330843-3 (Version None)
Quarter: 2012Q2

REPORT INFORMATION
  Report Type: 
  Country: None (occurrence: None)
  Receive Date: 20120502
  Receipt Date: 20120411
  Transmission Date: 20120825
  Serious: No
  Sender: FDA-Public Use
  Company Number: US-AMGEN-USASP2012021206

PATIENT
  Age: 65 Year
  Sex: Male

DRUGS (1)
  1. ENBREL [Suspect]
     Indication: RHEUMATOID ARTHRITIS
     Dosage: 50 MG, QWK
     Dates: start: 20120301

REACTIONS (7)
  - PAIN IN EXTREMITY [None]
  - INJECTION SITE PRURITUS [None]
  - INJECTION SITE ERYTHEMA [None]
  - GASTRIC HAEMORRHAGE [None]
  - EPIGASTRIC DISCOMFORT [None]
  - INJECTION SITE HAEMATOMA [None]
  - ARTHRALGIA [None]
